FAERS Safety Report 13121764 (Version 1)
Quarter: 2017Q1

REPORT INFORMATION
  Report Type: Spontaneous
  Country: US (occurrence: US)
  Receive Date: 20170117
  Receipt Date: 20170117
  Transmission Date: 20170428
  Serious: No
  Sender: FDA-Public Use
  Company Number: US-ELI_LILLY_AND_COMPANY-US201701002570

PATIENT
  Age: 57 Year
  Sex: Female

DRUGS (2)
  1. TRULICITY [Suspect]
     Active Substance: DULAGLUTIDE
     Indication: TYPE 2 DIABETES MELLITUS
     Dosage: 0.75 MG, WEEKLY (1/W)
     Route: 065
     Dates: start: 201612
  2. METFORMIN [Concomitant]
     Active Substance: METFORMIN HYDROCHLORIDE
     Dosage: 2000 MG, UNKNOWN

REACTIONS (4)
  - Nausea [Unknown]
  - Blood glucose increased [Recovered/Resolved]
  - Vision blurred [Not Recovered/Not Resolved]
  - Decreased appetite [Not Recovered/Not Resolved]

NARRATIVE: CASE EVENT DATE: 20161225
